FAERS Safety Report 4282634-0 (Version None)
Quarter: 2004Q1

REPORT INFORMATION
  Report Type: 
  Country: None (occurrence: None)
  Receive Date: 20040130
  Receipt Date: 20030106
  Transmission Date: 20041129
  Serious: No
  Sender: FDA-Public Use
  Company Number: US-BRISTOL-MYERS SQUIBB COMPANY-12151098

PATIENT
  Age: 58 Year
  Sex: Male

DRUGS (2)
  1. SERZONE [Suspect]
     Indication: DEPRESSION
     Route: 048
     Dates: start: 20021006
  2. RISPERIDONE [Suspect]
     Indication: MAJOR DEPRESSION
     Dosage: EXACT DATE OF START DATE IS UNCLEAR-EITHER 06-SEP-02 OR 06-OCT-02
     Route: 048

REACTIONS (3)
  - ABNORMAL DREAMS [None]
  - NERVOUSNESS [None]
  - SLEEP DISORDER [None]
